FAERS Safety Report 8227156-7 (Version None)
Quarter: 2012Q1

REPORT INFORMATION
  Report Type: 
  Country: None (occurrence: None)
  Receive Date: 20120322
  Receipt Date: 20120314
  Transmission Date: 20120608
  Serious: Yes (Other)
  Sender: FDA-Public Use
  Company Number: DE-JNJFOC-20120304447

PATIENT
  Sex: Female

DRUGS (2)
  1. XEPLION [Suspect]
     Route: 030
  2. XEPLION [Suspect]
     Indication: PRODUCT USED FOR UNKNOWN INDICATION
     Route: 030

REACTIONS (4)
  - BREAST ENLARGEMENT [None]
  - OVERDOSE [None]
  - BLOOD PROLACTIN INCREASED [None]
  - PARALYSIS [None]
